FAERS Safety Report 10365238 (Version 1)
Quarter: 2014Q3

REPORT INFORMATION
  Report Type: Spontaneous
  Country: CN (occurrence: CN)
  Receive Date: 20140806
  Receipt Date: 20140806
  Transmission Date: 20150326
  Serious: Yes (Hospitalization)
  Sender: FDA-Public Use
  Company Number: PHHY2014CN094496

PATIENT
  Age: 50 Year
  Sex: Female

DRUGS (1)
  1. METHYLDOPA. [Suspect]
     Active Substance: METHYLDOPA
     Dosage: 300 DF (}75 G)

REACTIONS (10)
  - Dizziness [Unknown]
  - Shock [Unknown]
  - Adjustment disorder [Unknown]
  - Intentional overdose [Unknown]
  - Vomiting [Unknown]
  - Suicide attempt [Unknown]
  - Heart rate decreased [Unknown]
  - Hypotension [Recovering/Resolving]
  - Somnolence [Unknown]
  - Nodal rhythm [Unknown]
